FAERS Safety Report 26024844 (Version 2)
Quarter: 2025Q4

REPORT INFORMATION
  Report Type: Spontaneous
  Country: US (occurrence: US)
  Receive Date: 20251111
  Receipt Date: 20251210
  Transmission Date: 20260118
  Serious: No
  Sender: AXSOME THERAPEUTICS
  Company Number: US-AXS-AXS202510-001879

PATIENT
  Age: 64 Year
  Sex: Female
  Weight: 77.11 kg

DRUGS (3)
  1. AUVELITY [Suspect]
     Active Substance: BUPROPION HYDROCHLORIDE\DEXTROMETHORPHAN HYDROBROMIDE
     Indication: Major depression
     Route: 048
  2. PRISTIQ EXTENDED-RELEASE [Concomitant]
     Active Substance: DESVENLAFAXINE SUCCINATE
     Indication: Major depression
     Route: 065
  3. ABILIFY [Concomitant]
     Active Substance: ARIPIPRAZOLE
     Indication: Major depression
     Route: 065

REACTIONS (2)
  - Feeling jittery [Recovered/Resolved with Sequelae]
  - Incorrect dose administered [Unknown]
